FAERS Safety Report 10050235 (Version 1)
Quarter: 2014Q2

REPORT INFORMATION
  Report Type: Report from Study
  Country: CA (occurrence: CA)
  Receive Date: 20140401
  Receipt Date: 20140401
  Transmission Date: 20141212
  Serious: Yes (Death, Hospitalization)
  Sender: FDA-Public Use
  Company Number: CA-INCYTE CORPORATION-2014IN000730

PATIENT
  Age: 85 Year
  Sex: Female

DRUGS (1)
  1. JAKAVI [Suspect]
     Indication: MYELOFIBROSIS
     Dosage: UNK UKN,UNK
     Route: 048
     Dates: start: 201207

REACTIONS (5)
  - Death [Fatal]
  - Pneumonia [Unknown]
  - Cardiac failure [Unknown]
  - Leukaemia [Unknown]
  - Malaise [Unknown]
